FAERS Safety Report 11688292 (Version 1)
Quarter: 2015Q4

REPORT INFORMATION
  Report Type: Spontaneous
  Country: US (occurrence: US)
  Receive Date: 20151030
  Receipt Date: 20151030
  Transmission Date: 20160304
  Serious: Yes (Other)
  Sender: FDA-Public Use
  Company Number: US-ASTRAZENECA-2015SF05170

PATIENT
  Age: 695 Month
  Sex: Female

DRUGS (6)
  1. OXYCONTIN [Concomitant]
     Active Substance: OXYCODONE HYDROCHLORIDE
  2. IBRANCE [Suspect]
     Active Substance: PALBOCICLIB
     Dosage: 125 MG EVERY DAY FOR 21 DAYS
     Route: 048
  3. XGEVA [Concomitant]
     Active Substance: DENOSUMAB
  4. LETROZOLE. [Suspect]
     Active Substance: LETROZOLE
     Route: 065
     Dates: start: 20100318, end: 20130821
  5. VITAMIN D [Concomitant]
     Active Substance: CHOLECALCIFEROL
  6. FASLODEX [Suspect]
     Active Substance: FULVESTRANT
     Route: 030
     Dates: start: 20090414, end: 20130821

REACTIONS (4)
  - Disease progression [Unknown]
  - Fatigue [Unknown]
  - Metastases to liver [Unknown]
  - Pain [Unknown]

NARRATIVE: CASE EVENT DATE: 201307
